FAERS Safety Report 6598745-0 (Version None)
Quarter: 2010Q1

REPORT INFORMATION
  Report Type: 
  Country: None (occurrence: None)
  Receive Date: 20100224
  Receipt Date: 20100216
  Transmission Date: 20100710
  Serious: Yes (Other)
  Sender: FDA-Public Use
  Company Number: GB-B.I. PHARMACEUTICALS,INC./RIDGEFIELD-2010-UK-00135UK

PATIENT
  Sex: Male

DRUGS (3)
  1. ATROVENT [Suspect]
     Indication: DRUG WITHDRAWAL SYNDROME
     Dosage: 0.5 ML OF 1ML 250 MCG AMPOULE PLUS  2ML NACL ADMINISTERED VIA I.V
     Route: 042
     Dates: start: 20100216, end: 20100216
  2. ATROVENT [Suspect]
     Dosage: 375 MCG
     Route: 055
     Dates: start: 20100215
  3. ALBUTEROL [Concomitant]

REACTIONS (5)
  - COUGH [None]
  - MEDICATION ERROR [None]
  - OVERDOSE [None]
  - TACHYCARDIA [None]
  - URINARY RETENTION [None]
